FAERS Safety Report 15334183 (Version 1)
Quarter: 2018Q3

REPORT INFORMATION
  Report Type: Spontaneous
  Country: CN (occurrence: CN)
  Receive Date: 20180830
  Receipt Date: 20180830
  Transmission Date: 20181010
  Serious: Yes (Life-Threatening, Hospitalization)
  Sender: FDA-Public Use
  Company Number: CN-PFIZER INC-2018348569

PATIENT
  Age: 63 Year
  Sex: Male
  Weight: 69 kg

DRUGS (2)
  1. MEDROL [Suspect]
     Active Substance: METHYLPREDNISOLONE
     Dosage: UNK
  2. MEDROL [Suspect]
     Active Substance: METHYLPREDNISOLONE
     Indication: RHEUMATOID ARTHRITIS
     Dosage: 8 MG, 2X/DAY
     Route: 048
     Dates: start: 20180416, end: 20180616

REACTIONS (4)
  - Fall [Unknown]
  - Hypokalaemia [Recovering/Resolving]
  - Asthenia [Recovering/Resolving]
  - Skin abrasion [Unknown]

NARRATIVE: CASE EVENT DATE: 20180515
